FAERS Safety Report 22684776 (Version 2)
Quarter: 2024Q1

REPORT INFORMATION
  Report Type: Spontaneous
  Country: US (occurrence: US)
  Receive Date: 20230710
  Receipt Date: 20240222
  Transmission Date: 20240410
  Serious: No
  Sender: FDA-Public Use
  Company Number: US-ELI_LILLY_AND_COMPANY-US202307002612

PATIENT
  Age: 53 Year
  Sex: Female

DRUGS (18)
  1. MOUNJARO [Suspect]
     Active Substance: TIRZEPATIDE
     Indication: Glucose tolerance impaired
     Dosage: UNK UNK, UNKNOWN
     Route: 058
  2. MOUNJARO [Suspect]
     Active Substance: TIRZEPATIDE
     Indication: Overweight
     Dosage: 7.5 MG, UNKNOWN
     Route: 058
  3. MOUNJARO [Suspect]
     Active Substance: TIRZEPATIDE
     Indication: Polycystic ovarian syndrome
  4. MOUNJARO [Suspect]
     Active Substance: TIRZEPATIDE
     Indication: Glucose tolerance impaired
     Dosage: 15 MG, UNKNOWN
     Route: 058
  5. MOUNJARO [Suspect]
     Active Substance: TIRZEPATIDE
     Indication: Glucose tolerance impaired
     Dosage: 15 MG, UNKNOWN
     Route: 058
  6. MOUNJARO [Suspect]
     Active Substance: TIRZEPATIDE
     Indication: Glucose tolerance impaired
     Dosage: 15 MG, UNKNOWN
     Route: 058
  7. MOUNJARO [Suspect]
     Active Substance: TIRZEPATIDE
     Indication: Glucose tolerance impaired
     Dosage: 15 MG, UNKNOWN
     Route: 058
  8. MOUNJARO [Suspect]
     Active Substance: TIRZEPATIDE
     Indication: Glucose tolerance impaired
     Dosage: 15 MG, UNKNOWN
     Route: 058
  9. MOUNJARO [Suspect]
     Active Substance: TIRZEPATIDE
     Indication: Overweight
  10. MOUNJARO [Suspect]
     Active Substance: TIRZEPATIDE
     Indication: Overweight
  11. MOUNJARO [Suspect]
     Active Substance: TIRZEPATIDE
     Indication: Overweight
  12. MOUNJARO [Suspect]
     Active Substance: TIRZEPATIDE
     Indication: Overweight
  13. MOUNJARO [Suspect]
     Active Substance: TIRZEPATIDE
     Indication: Overweight
  14. MOUNJARO [Suspect]
     Active Substance: TIRZEPATIDE
     Indication: Polycystic ovarian syndrome
  15. MOUNJARO [Suspect]
     Active Substance: TIRZEPATIDE
     Indication: Polycystic ovarian syndrome
  16. MOUNJARO [Suspect]
     Active Substance: TIRZEPATIDE
     Indication: Polycystic ovarian syndrome
  17. MOUNJARO [Suspect]
     Active Substance: TIRZEPATIDE
     Indication: Polycystic ovarian syndrome
  18. MOUNJARO [Suspect]
     Active Substance: TIRZEPATIDE
     Indication: Polycystic ovarian syndrome

REACTIONS (2)
  - Off label use [Unknown]
  - Incorrect dose administered [Unknown]
